FAERS Safety Report 11493505 (Version 1)
Quarter: 2015Q3

REPORT INFORMATION
  Report Type: Spontaneous
  Country: US (occurrence: US)
  Receive Date: 20150911
  Receipt Date: 20150911
  Transmission Date: 20151125
  Serious: No
  Sender: FDA-Public Use
  Company Number: US-ROCHE-802794

PATIENT
  Sex: Female

DRUGS (12)
  1. PEGASYS [Suspect]
     Active Substance: PEGINTERFERON ALFA-2A
     Indication: HEPATITIS C
     Dosage: FOR 24 WEEKS LENGTH OF THERAPY
     Route: 058
  2. LITHIUM. [Concomitant]
     Active Substance: LITHIUM
     Indication: AFFECTIVE DISORDER
     Route: 065
  3. ZOFRAN [Concomitant]
     Active Substance: ONDANSETRON HYDROCHLORIDE
     Indication: PRODUCT USED FOR UNKNOWN INDICATION
  4. GEODON [Concomitant]
     Active Substance: ZIPRASIDONE HYDROCHLORIDE\ZIPRASIDONE MESYLATE
     Indication: AFFECTIVE DISORDER
     Route: 065
  5. IMITREX [Concomitant]
     Active Substance: SUMATRIPTAN\SUMATRIPTAN SUCCINATE
  6. REMERON [Concomitant]
     Active Substance: MIRTAZAPINE
     Indication: AFFECTIVE DISORDER
     Route: 065
  7. VALIUM [Concomitant]
     Active Substance: DIAZEPAM
     Indication: AFFECTIVE DISORDER
     Route: 065
  8. TELAPREVIR [Suspect]
     Active Substance: TELAPREVIR
     Route: 065
  9. LAMICTAL [Concomitant]
     Active Substance: LAMOTRIGINE
     Indication: AFFECTIVE DISORDER
     Route: 065
  10. TELAPREVIR [Suspect]
     Active Substance: TELAPREVIR
     Indication: HEPATITIS C
     Route: 065
  11. HALDOL [Concomitant]
     Active Substance: HALOPERIDOL
     Indication: AFFECTIVE DISORDER
     Route: 065
  12. RIBAVIRIN. [Suspect]
     Active Substance: RIBAVIRIN
     Indication: HEPATITIS C
     Dosage: IN DIVIDED DOSES FOR 24 WEEKS LENGTH OF THERAPY
     Route: 048

REACTIONS (22)
  - Paraesthesia [Unknown]
  - Candida infection [Unknown]
  - Vomiting [Unknown]
  - Hypothyroidism [Unknown]
  - Anxiety [Unknown]
  - Malaise [Unknown]
  - Nausea [Unknown]
  - Depressed mood [Unknown]
  - Vision blurred [Unknown]
  - Migraine [Unknown]
  - Dysarthria [Unknown]
  - Dehydration [Unknown]
  - Hallucination [Unknown]
  - Drooling [Unknown]
  - Tooth extraction [Unknown]
  - Fatigue [Unknown]
  - Irritability [Unknown]
  - Rash [Unknown]
  - Cough [Unknown]
  - VIIth nerve paralysis [Unknown]
  - Sinusitis [Unknown]
  - Insomnia [Unknown]
